FAERS Safety Report 20241049 (Version 2)
Quarter: 2022Q1

REPORT INFORMATION
  Report Type: Spontaneous
  Country: US (occurrence: US)
  Receive Date: 20211228
  Receipt Date: 20220106
  Transmission Date: 20220423
  Serious: No
  Sender: FDA-Public Use
  Company Number: US-PFIZER INC-2021541893

PATIENT
  Age: 51 Year
  Sex: Male

DRUGS (2)
  1. INLYTA [Suspect]
     Active Substance: AXITINIB
     Indication: Renal cancer
     Dosage: 5 MG, 2X/DAY
     Route: 048
  2. DIOVAN [Concomitant]
     Active Substance: VALSARTAN
     Dosage: UNK (80MG)

REACTIONS (3)
  - Pain in extremity [Recovering/Resolving]
  - Dry skin [Recovering/Resolving]
  - Skin exfoliation [Recovering/Resolving]
